FAERS Safety Report 16662148 (Version 1)
Quarter: 2019Q3

REPORT INFORMATION
  Report Type: Spontaneous
  Country: US (occurrence: US)
  Receive Date: 20190802
  Receipt Date: 20190802
  Transmission Date: 20191004
  Serious: Yes (Other)
  Sender: FDA-Public Use
  Company Number: None

PATIENT
  Age: 61 Year
  Sex: Female

DRUGS (1)
  1. TRULICITY [Suspect]
     Active Substance: DULAGLUTIDE
     Indication: TYPE 2 DIABETES MELLITUS
     Dosage: ?          OTHER FREQUENCY:QWK;?
     Route: 058
     Dates: start: 20190309

REACTIONS (1)
  - Breast cancer [None]

NARRATIVE: CASE EVENT DATE: 20190621
